FAERS Safety Report 8614316 (Version 2)
Quarter: 2013Q3

REPORT INFORMATION
  Report Type: Spontaneous
  Country: US (occurrence: US)
  Receive Date: 20120614
  Receipt Date: 20130925
  Transmission Date: 20140515
  Serious: Yes (Hospitalization)
  Sender: FDA-Public Use
  Company Number: US-ASTRAZENECA-2012SE35194

PATIENT
  Age: 24843 Day
  Sex: Female
  Weight: 74.8 kg

DRUGS (13)
  1. NEXIUM [Suspect]
     Indication: GASTROOESOPHAGEAL REFLUX DISEASE
     Route: 048
     Dates: start: 20120710
  2. NEXIUM [Suspect]
     Indication: GASTRIC ULCER
     Route: 048
     Dates: start: 20120710
  3. NEXIUM [Suspect]
     Indication: GASTROOESOPHAGEAL REFLUX DISEASE
     Dosage: DAILY
     Route: 048
     Dates: start: 20060712, end: 20111118
  4. NEXIUM [Suspect]
     Indication: GASTRIC ULCER
     Dosage: DAILY
     Route: 048
     Dates: start: 20060712, end: 20111118
  5. NEXIUM [Suspect]
     Indication: GASTROOESOPHAGEAL REFLUX DISEASE
     Route: 048
     Dates: start: 20091031
  6. NEXIUM [Suspect]
     Indication: GASTRIC ULCER
     Route: 048
     Dates: start: 20091031
  7. PEPTO-BISMOL [Concomitant]
  8. VITAMIN E [Concomitant]
  9. NAPROXEN [Concomitant]
     Indication: BACK PAIN
  10. CIPROFLOXACIN [Concomitant]
     Indication: PAIN
  11. ALENDRONATE [Concomitant]
     Indication: BONE DISORDER
     Dates: start: 20120710
  12. PAROXETINE [Concomitant]
  13. COMBIVENT [Concomitant]
     Route: 055

REACTIONS (10)
  - Cytology abnormal [Unknown]
  - Influenza [Unknown]
  - Gastritis [Unknown]
  - Osteopenia [Unknown]
  - Osteoporosis [Unknown]
  - Lumbar vertebral fracture [Unknown]
  - Fracture [Unknown]
  - Multiple fractures [Unknown]
  - Musculoskeletal discomfort [Unknown]
  - Abdominal pain lower [Unknown]
